FAERS Safety Report 9185450 (Version 1)
Quarter: 2012Q4

REPORT INFORMATION
  Report Type: 
  Country: US (occurrence: US)
  Receive Date: 20121101
  Receipt Date: 20121101
  Transmission Date: 20130627
  Serious: No
  Sender: FDA-Public Use
  Company Number: US-BAYER-2012-114826

PATIENT
  Age: 55 Year
  Sex: Female

DRUGS (1)
  1. MENOSTAR [Suspect]
     Indication: MENOPAUSAL SYMPTOMS
     Dosage: 14 mcg/24hr, CONT
     Route: 062
     Dates: start: 201209

REACTIONS (1)
  - Dysgeusia [Not Recovered/Not Resolved]
